FAERS Safety Report 15007728 (Version 2)
Quarter: 2018Q3

REPORT INFORMATION
  Report Type: Report from Study
  Country: None (occurrence: US)
  Receive Date: 20180613
  Receipt Date: 20180830
  Transmission Date: 20181010
  Serious: Yes (Other)
  Sender: FDA-Public Use
  Company Number: US-ABBVIE-18K-163-2385271-00

PATIENT
  Age: 64 Year
  Sex: Male
  Weight: 106.69 kg

DRUGS (3)
  1. LISINOPRIL. [Concomitant]
     Active Substance: LISINOPRIL
     Indication: BLOOD PRESSURE MEASUREMENT
  2. HUMIRA [Suspect]
     Active Substance: ADALIMUMAB
     Indication: PSORIASIS
     Route: 058
  3. TERAZOSIN [Concomitant]
     Active Substance: TERAZOSIN\TERAZOSIN HYDROCHLORIDE
     Indication: BLOOD PRESSURE MEASUREMENT

REACTIONS (5)
  - Rotator cuff syndrome [Unknown]
  - Fall [Unknown]
  - Psoriasis [Unknown]
  - Muscle rupture [Unknown]
  - Arthritis [Unknown]

NARRATIVE: CASE EVENT DATE: 2018
